FAERS Safety Report 25373021 (Version 1)
Quarter: 2025Q2

REPORT INFORMATION
  Report Type: Spontaneous
  Country: US (occurrence: None)
  Receive Date: 20250528
  Receipt Date: 20250528
  Transmission Date: 20250716
  Serious: Yes (Hospitalization)
  Sender: FDA-CTU
  Company Number: None

PATIENT
  Sex: Male
  Weight: 80.1 kg

DRUGS (4)
  1. OPSUMIT [Suspect]
     Active Substance: MACITENTAN
     Indication: Pulmonary arterial hypertension
     Dosage: FREQUENCY : DAILY;?
     Route: 048
     Dates: start: 20210813
  2. SILDENAFIL CITRATE [Concomitant]
     Active Substance: SILDENAFIL CITRATE
  3. DEVICE [Concomitant]
     Active Substance: DEVICE
  4. REMODULIN [Suspect]
     Active Substance: TREPROSTINIL

REACTIONS (2)
  - Catheter site infection [None]
  - Catheter site pain [None]
